FAERS Safety Report 9021027 (Version 1)
Quarter: 2013Q1

REPORT INFORMATION
  Report Type: Spontaneous
  Country: US (occurrence: US)
  Receive Date: 20130119
  Receipt Date: 20130119
  Transmission Date: 20140127
  Serious: No
  Sender: FDA-Public Use
  Company Number: US-ALLERGAN-1204611US

PATIENT
  Sex: Female

DRUGS (2)
  1. BOTOX? [Suspect]
     Indication: MIGRAINE
     Dosage: UNK
     Dates: start: 201111, end: 201111
  2. BOTOX? [Suspect]
     Dosage: UNK
     Dates: start: 201202, end: 201202

REACTIONS (2)
  - Bacterial infection [Unknown]
  - Fungal infection [Unknown]
